FAERS Safety Report 17223544 (Version 1)
Quarter: 2020Q1

REPORT INFORMATION
  Report Type: Spontaneous
  Country: CN (occurrence: CN)
  Receive Date: 20200102
  Receipt Date: 20200102
  Transmission Date: 20200409
  Serious: Yes (Life-Threatening, Hospitalization)
  Sender: FDA-Public Use
  Company Number: CN-GLAXOSMITHKLINE-CN2019APC237317

PATIENT

DRUGS (3)
  1. ZINACEF [Suspect]
     Active Substance: CEFUROXIME SODIUM
     Indication: BRONCHITIS
     Dosage: 500 MG, BID
     Route: 048
     Dates: start: 20191227, end: 20191227
  2. AMMONIUM CHLORIDE + PENTOXYVERINE CITRATE [Suspect]
     Active Substance: AMMONIUM CHLORIDE\PENTOXYVERINE CITRATE
     Indication: BRONCHITIS
     Dosage: 1 DF, TID
     Route: 048
     Dates: start: 20191227, end: 20191227
  3. PULIMIN [Suspect]
     Active Substance: PEMIROLAST POTASSIUM
     Indication: BRONCHITIS
     Dosage: 10 MG, BID
     Route: 048
     Dates: start: 20191227, end: 20191227

REACTIONS (5)
  - Tremor [Recovering/Resolving]
  - Dizziness [Recovering/Resolving]
  - Pruritus [Recovering/Resolving]
  - Vomiting [Recovering/Resolving]
  - Confusional state [Recovering/Resolving]

NARRATIVE: CASE EVENT DATE: 20191227
